FAERS Safety Report 9757314 (Version 1)
Quarter: 2013Q4

REPORT INFORMATION
  Report Type: Report from Study
  Country: JP (occurrence: JP)
  Receive Date: 20131214
  Receipt Date: 20131214
  Transmission Date: 20140711
  Serious: Yes (Hospitalization)
  Sender: FDA-Public Use
  Company Number: JP-ROCHE-1315642

PATIENT
  Age: 69 Year
  Sex: Male
  Weight: 48 kg

DRUGS (9)
  1. METHOXY POLYETHYLENE GLYCOL-EPOETIN BETA [Suspect]
     Indication: NEPHROGENIC ANAEMIA
     Route: 042
     Dates: start: 20120522
  2. CALCIUM CARBONATE [Concomitant]
     Indication: GLOMERULONEPHRITIS CHRONIC
     Route: 048
  3. DOXAZOSIN MESILATE [Concomitant]
     Dosage: REPORTED AS CADEMESIN
     Route: 048
     Dates: end: 20130121
  4. DOXAZOSIN MESILATE [Concomitant]
     Route: 048
     Dates: start: 20130122, end: 20130417
  5. ARTIST [Concomitant]
     Route: 048
  6. BLOPRESS [Concomitant]
     Route: 048
  7. NORVASC [Concomitant]
     Route: 048
  8. FALECALCITRIOL [Concomitant]
     Dosage: REPORTED AS HORNEL
     Route: 048
  9. PHOSBLOCK [Concomitant]
     Route: 048
     Dates: end: 20120820

REACTIONS (2)
  - Shunt occlusion [Recovered/Resolved]
  - Nasopharyngitis [Recovered/Resolved]
